FAERS Safety Report 21057659 (Version 1)
Quarter: 2022Q3

REPORT INFORMATION
  Report Type: Report from Study
  Country: US (occurrence: US)
  Receive Date: 20220708
  Receipt Date: 20220708
  Transmission Date: 20221026
  Serious: Yes (Death)
  Sender: FDA-Public Use
  Company Number: US-JNJFOC-20220709982

PATIENT
  Age: 4 Year
  Sex: Female

DRUGS (2)
  1. ACETAMINOPHEN [Suspect]
     Active Substance: ACETAMINOPHEN
     Indication: Product used for unknown indication
     Dosage: UNSPECIFIED AMOUNT OF ACETAMINOPHEN 160 MG/5 ML EVERY 4 HOURS
     Route: 065
     Dates: start: 2018
  2. IBUPROFEN [Suspect]
     Active Substance: IBUPROFEN
     Indication: Product used for unknown indication
     Dosage: 100 MG/5 ML FOR AN UNKNOWN AMOUNT OF TIME
     Route: 065
     Dates: start: 2018

REACTIONS (3)
  - Toxicity to various agents [Fatal]
  - Medication error [Fatal]
  - Respiratory arrest [Fatal]

NARRATIVE: CASE EVENT DATE: 20180101
